FAERS Safety Report 16036555 (Version 1)
Quarter: 2019Q1

REPORT INFORMATION
  Report Type: Spontaneous
  Country: US (occurrence: US)
  Receive Date: 20190305
  Receipt Date: 20190305
  Transmission Date: 20190418
  Serious: Yes (Hospitalization, Other)
  Sender: FDA-Public Use
  Company Number: US-OTSUKA-2019_006247

PATIENT
  Sex: Male

DRUGS (2)
  1. COGENTIN [Suspect]
     Active Substance: BENZTROPINE MESYLATE
     Indication: TREMOR
     Dosage: UNK
     Route: 065
     Dates: end: 201902
  2. ABILIFY [Suspect]
     Active Substance: ARIPIPRAZOLE
     Indication: DEPRESSION
     Dosage: UNK
     Route: 065
     Dates: end: 201902

REACTIONS (7)
  - Feeding disorder [Unknown]
  - Vomiting [Unknown]
  - Intestinal obstruction [Not Recovered/Not Resolved]
  - Colostomy [Unknown]
  - Tremor [Unknown]
  - Product use issue [Unknown]
  - Renal transplant [Unknown]
